FAERS Safety Report 9100756 (Version 1)
Quarter: 2013Q1

REPORT INFORMATION
  Report Type: Spontaneous
  Country: US (occurrence: US)
  Receive Date: 20130215
  Receipt Date: 20130215
  Transmission Date: 20140127
  Serious: No
  Sender: FDA-Public Use
  Company Number: US-PFIZER INC-2013056873

PATIENT
  Sex: Female

DRUGS (1)
  1. XANAX [Suspect]
     Indication: SCHIZOPHRENIA
     Dosage: 2 TABLETS OF 0.25 MG

REACTIONS (4)
  - Anger [Unknown]
  - Thinking abnormal [Unknown]
  - Paranoia [Unknown]
  - Off label use [Unknown]
